FAERS Safety Report 24229447 (Version 3)
Quarter: 2024Q4

REPORT INFORMATION
  Report Type: Spontaneous
  Country: BR (occurrence: BR)
  Receive Date: 20240820
  Receipt Date: 20241101
  Transmission Date: 20250114
  Serious: Yes (Other)
  Sender: NOVARTIS
  Company Number: BR-002147023-NVSC2024BR167165

PATIENT
  Sex: Male

DRUGS (1)
  1. AMLODIPINE\VALSARTAN [Suspect]
     Active Substance: AMLODIPINE\VALSARTAN
     Indication: Product used for unknown indication
     Dosage: UNK (28 COATED TABLETS)
     Route: 065

REACTIONS (3)
  - Packaging design issue [Unknown]
  - Accidental exposure to product packaging [Unknown]
  - Injury [Unknown]
